FAERS Safety Report 8267926-2 (Version None)
Quarter: 2012Q2

REPORT INFORMATION
  Report Type: 
  Country: None (occurrence: None)
  Receive Date: 20120409
  Receipt Date: 20120328
  Transmission Date: 20120825
  Serious: Yes (Hospitalization)
  Sender: FDA-Public Use
  Company Number: PHHY2012FR018381

PATIENT
  Sex: Male

DRUGS (15)
  1. MORPHINE SULFATE [Suspect]
     Route: 048
     Dates: start: 20060701
  2. MORPHINE SULFATE [Suspect]
     Route: 048
     Dates: start: 20101101
  3. PAMIDRONIC ACID [Suspect]
     Dosage: 60 MG, UNK
     Route: 042
     Dates: start: 20111212, end: 20111212
  4. ACETAMINOPHEN [Suspect]
     Route: 048
     Dates: start: 20101101
  5. ANAFRANIL [Suspect]
     Dosage: 100 MG, DAILY
     Route: 048
     Dates: start: 20110402
  6. ACETAMINOPHEN [Suspect]
     Dosage: 3 G, DAILY
     Route: 048
     Dates: start: 20050101
  7. OMEPRAZOLE [Suspect]
     Route: 048
     Dates: start: 20050101
  8. PAMIDRONIC ACID [Suspect]
     Dosage: 60 MG, UNK
     Route: 042
     Dates: start: 20111102
  9. MORPHINE SULFATE [Suspect]
     Dates: start: 20101101
  10. VOLTAREN [Suspect]
     Dosage: 75 MG, DAILY
     Route: 048
     Dates: start: 20101101
  11. CELIPROLOL [Suspect]
     Dosage: 200 MG, DAILY
     Route: 048
     Dates: start: 20050101
  12. MOTILIUM [Suspect]
     Route: 048
     Dates: start: 20060701
  13. MORPHINE SULFATE [Suspect]
     Route: 048
     Dates: start: 20061001
  14. PAMIDRONIC ACID [Suspect]
     Dosage: 60 MG, UNK
     Route: 042
     Dates: start: 20111017
  15. PAMIDRONIC ACID [Suspect]
     Dosage: 60 MG, UNK
     Route: 042
     Dates: start: 20111114

REACTIONS (10)
  - C-REACTIVE PROTEIN INCREASED [None]
  - BORRELIA INFECTION [None]
  - PULMONARY ARTERIAL HYPERTENSION [None]
  - DRY SKIN [None]
  - SIALOADENITIS [None]
  - NODULE [None]
  - HYPERGAMMAGLOBULINAEMIA [None]
  - CHOLESTASIS [None]
  - SALIVARY GLAND DISORDER [None]
  - SCLERODERMA [None]
